FAERS Safety Report 7677240-1 (Version None)
Quarter: 2011Q3

REPORT INFORMATION
  Report Type: 
  Country: None (occurrence: None)
  Receive Date: 20110811
  Receipt Date: 20110809
  Transmission Date: 20111222
  Serious: Yes (Other)
  Sender: FDA-Public Use
  Company Number: KR-PFIZER INC-2011066310

PATIENT
  Age: 25 Year
  Sex: Male

DRUGS (1)
  1. NEURONTIN [Suspect]
     Indication: POST-THORACOTOMY PAIN SYNDROME
     Dosage: 300 MG, 3X/DAY

REACTIONS (1)
  - VASCULITIS [None]
